FAERS Safety Report 4911884-2 (Version None)
Quarter: 2006Q1

REPORT INFORMATION
  Report Type: 
  Country: None (occurrence: None)
  Receive Date: 20060213
  Receipt Date: 20060213
  Transmission Date: 20060701
  Serious: Yes (Other)
  Sender: FDA-Public Use
  Company Number: None

PATIENT
  Sex: Female
  Weight: 91.6266 kg

DRUGS (7)
  1. ZETIA [Suspect]
     Indication: DIABETES MELLITUS NON-INSULIN-DEPENDENT
  2. ZETIA [Suspect]
     Indication: LOW DENSITY LIPOPROTEIN INCREASED
  3. EFUDEX [Suspect]
  4. LASIX [Concomitant]
  5. POTASSIUM CHLORIDE [Concomitant]
  6. ZOLOFT [Concomitant]
  7. LIPITOR [Concomitant]

REACTIONS (6)
  - ABDOMINAL DISTENSION [None]
  - ECZEMA [None]
  - ERYTHEMA [None]
  - MYALGIA [None]
  - RASH [None]
  - SCAR [None]
